FAERS Safety Report 13995132 (Version 1)
Quarter: 2017Q3

REPORT INFORMATION
  Report Type: Spontaneous
  Country: US (occurrence: US)
  Receive Date: 20170921
  Receipt Date: 20170921
  Transmission Date: 20171128
  Serious: Yes (Disabling)
  Sender: FDA-Public Use
  Company Number: None

PATIENT
  Age: 70 Year
  Sex: Female
  Weight: 54 kg

DRUGS (11)
  1. TRAMADOL. [Suspect]
     Active Substance: TRAMADOL
     Indication: TENDONITIS
     Dosage: ?          QUANTITY:1 TABLET(S);?
     Route: 048
     Dates: start: 20170720, end: 20170921
  2. AMITRIPTYLINE [Concomitant]
     Active Substance: AMITRIPTYLINE
  3. TYLENOL [Concomitant]
     Active Substance: ACETAMINOPHEN
  4. CLIMARA ESTROGEN PATCH [Concomitant]
  5. VALACYCLOVIR [Concomitant]
     Active Substance: VALACYCLOVIR HYDROCHLORIDE
  6. TURMERIC [Concomitant]
     Active Substance: HERBALS\TURMERIC
  7. VITAMINS--MULTI, B, C, D [Concomitant]
  8. BABY ASPIRIN [Concomitant]
     Active Substance: ASPIRIN
  9. COENZYME Q10 [Concomitant]
     Active Substance: UBIDECARENONE
  10. CALCIUM [Concomitant]
     Active Substance: CALCIUM
  11. BLACK CURRANTSEED OIL [Concomitant]

REACTIONS (8)
  - Nausea [None]
  - Insomnia [None]
  - Drug effect decreased [None]
  - Fatigue [None]
  - Agitation [None]
  - Muscle spasms [None]
  - Diarrhoea [None]
  - Asthenia [None]

NARRATIVE: CASE EVENT DATE: 20170918
